FAERS Safety Report 11922523 (Version 3)
Quarter: 2016Q1

REPORT INFORMATION
  Report Type: Spontaneous
  Country: IE (occurrence: IE)
  Receive Date: 20160115
  Receipt Date: 20160322
  Transmission Date: 20160526
  Serious: Yes (Hospitalization)
  Sender: FDA-Public Use
  Company Number: IE-KADMON PHARMACEUTICALS, LLC-KAD201601-000060

PATIENT
  Age: 60 Year
  Sex: Female

DRUGS (6)
  1. AMOXICILLIN PERIDONTAL GEL [Concomitant]
     Indication: ABSCESS
     Dates: start: 20151209, end: 20151213
  2. RIBAVIRIN. [Suspect]
     Active Substance: RIBAVIRIN
     Indication: HEPATITIS C
     Dosage: TABLET
     Route: 048
     Dates: end: 20151231
  3. EXVIERA [Suspect]
     Active Substance: DASABUVIR
     Indication: HEPATITIS C
     Dosage: TABLET
     Route: 048
     Dates: start: 20151015, end: 20151231
  4. CEFUROXIME. [Concomitant]
     Active Substance: CEFUROXIME
     Indication: ABSCESS
     Route: 048
     Dates: start: 20151214
  5. SLOW K [Concomitant]
     Active Substance: POTASSIUM CHLORIDE
     Indication: BLOOD POTASSIUM DECREASED
     Route: 048
     Dates: start: 20150818, end: 20151222
  6. VIEKIRAX [Suspect]
     Active Substance: OMBITASVIR\PARITAPREVIR\RITONAVIR
     Indication: HEPATITIS C
     Dosage: TABLET
     Route: 048
     Dates: start: 20151015, end: 20151231

REACTIONS (2)
  - Ascites [Recovering/Resolving]
  - Abdominal wall abscess [Recovering/Resolving]

NARRATIVE: CASE EVENT DATE: 20151231
